FAERS Safety Report 10219111 (Version 1)
Quarter: 2014Q2

REPORT INFORMATION
  Report Type: Spontaneous
  Country: US (occurrence: US)
  Receive Date: 20140605
  Receipt Date: 20140605
  Transmission Date: 20141212
  Serious: No
  Sender: FDA-Public Use
  Company Number: US-GILEAD-2014-0104350

PATIENT
  Sex: Female

DRUGS (5)
  1. LETAIRIS [Suspect]
     Indication: PRODUCT USED FOR UNKNOWN INDICATION
     Dosage: 10 MG, QD
     Route: 065
     Dates: start: 20130530
  2. TYVASO [Concomitant]
  3. REVATIO [Concomitant]
  4. WARFARIN [Concomitant]
  5. OXYGEN [Concomitant]

REACTIONS (3)
  - Seasonal allergy [Not Recovered/Not Resolved]
  - Nasal congestion [Unknown]
  - Palpitations [Not Recovered/Not Resolved]
